FAERS Safety Report 8135945 (Version 5)
Quarter: 2013Q1

REPORT INFORMATION
  Report Type: Spontaneous
  Country: US (occurrence: US)
  Receive Date: 20110914
  Receipt Date: 20130301
  Transmission Date: 20140127
  Serious: Yes (Other)
  Sender: FDA-Public Use
  Company Number: US-ASTRAZENECA-2011SE52871

PATIENT
  Age: 75 Year
  Sex: Female

DRUGS (4)
  1. NEXIUM [Suspect]
     Route: 048
  2. NEXIUM [Suspect]
     Route: 048
  3. PRILOSEC [Suspect]
     Route: 048
  4. SMOKING CESSATION DRUG [Suspect]

REACTIONS (11)
  - Oesophageal carcinoma [Recovering/Resolving]
  - Gastrointestinal neoplasm [Unknown]
  - Oesophageal neoplasm [Unknown]
  - Neoplasm malignant [Unknown]
  - Diabetes mellitus [Unknown]
  - Dyspepsia [Unknown]
  - Abnormal loss of weight [Unknown]
  - Gastrooesophageal reflux disease [Unknown]
  - Aphagia [Unknown]
  - Dyspepsia [Unknown]
  - Drug dose omission [Unknown]
